FAERS Safety Report 9162981 (Version 1)
Quarter: 2012Q4

REPORT INFORMATION
  Report Type: 
  Country: DE (occurrence: JP)
  Receive Date: 20121220
  Receipt Date: 20121220
  Transmission Date: 20130627
  Serious: Yes (Hospitalization, Other)
  Sender: FDA-Public Use
  Company Number: JP-BRACCO-006654

PATIENT
  Age: 46 Year
  Sex: Female

DRUGS (2)
  1. IOPAMIRON [Suspect]
     Indication: COMPUTERISED TOMOGRAM
     Route: 042
     Dates: start: 20121206, end: 20121206
  2. IOPAMIRON [Suspect]
     Indication: RANULA
     Route: 042
     Dates: start: 20121121, end: 20121121

REACTIONS (1)
  - Leukocytoclastic vasculitis [Recovered/Resolved]
